FAERS Safety Report 13694903 (Version 1)
Quarter: 2017Q2

REPORT INFORMATION
  Report Type: Spontaneous
  Country: IT (occurrence: IT)
  Receive Date: 20170627
  Receipt Date: 20170627
  Transmission Date: 20170830
  Serious: Yes (Hospitalization, Other)
  Sender: FDA-Public Use
  Company Number: IT-ASTRAZENECA-2017SE65352

PATIENT
  Age: 56 Year
  Sex: Female

DRUGS (1)
  1. FULVESTRANT [Suspect]
     Active Substance: FULVESTRANT
     Dosage: 500 MG EVERY 28 DAYS
     Route: 030
     Dates: start: 201503

REACTIONS (4)
  - Dyspnoea [Unknown]
  - Deep vein thrombosis [Unknown]
  - Presyncope [Unknown]
  - Pulmonary embolism [Unknown]
